FAERS Safety Report 15275407 (Version 1)
Quarter: 2018Q3

REPORT INFORMATION
  Report Type: Spontaneous
  Country: US (occurrence: US)
  Receive Date: 20180727
  Receipt Date: 20180727
  Transmission Date: 20181010
  Serious: No
  Sender: FDA-Public Use
  Company Number: None

PATIENT
  Age: 40 Year
  Sex: Female

DRUGS (1)
  1. MENOPUR [Suspect]
     Active Substance: FOLLITROPIN\LUTEINIZING HORMONE
     Indication: INFERTILITY
     Route: 058
     Dates: start: 20180724

REACTIONS (3)
  - Fatigue [None]
  - Abdominal pain [None]
  - Swelling [None]

NARRATIVE: CASE EVENT DATE: 20180724
